FAERS Safety Report 13721942 (Version 1)
Quarter: 2017Q3

REPORT INFORMATION
  Report Type: Spontaneous
  Country: US (occurrence: US)
  Receive Date: 20170706
  Receipt Date: 20170706
  Transmission Date: 20171127
  Serious: No
  Sender: FDA-Public Use
  Company Number: US-PFIZER INC-2017283172

PATIENT
  Age: 67 Year
  Sex: Female
  Weight: 101 kg

DRUGS (20)
  1. FENTANYL. [Concomitant]
     Active Substance: FENTANYL
     Indication: PAIN
     Dosage: 100 UG (WHICH STARTED AT 25 AND WORKED HER WAY UP), EVERY 72 HRS
     Dates: start: 2003
  2. VITAMIN B12 [Concomitant]
     Active Substance: CYANOCOBALAMIN
     Indication: ROUTINE HEALTH MAINTENANCE
     Dosage: 2500 UG, ONCE A DAY
     Route: 060
     Dates: start: 2015
  3. FISH OIL [Concomitant]
     Active Substance: FISH OIL
     Indication: THROMBOSIS PROPHYLAXIS
     Dosage: 1000 MG, ONCE A DAY
     Dates: start: 2000
  4. NIACIN. [Concomitant]
     Active Substance: NIACIN
     Indication: LIPIDS ABNORMAL
     Dosage: 500 MG, ONCE A DAY
  5. HYDROCHLOROTHIAZIDE. [Concomitant]
     Active Substance: HYDROCHLOROTHIAZIDE
     Indication: BLOOD PRESSURE ABNORMAL
     Dosage: 25 MG, ONCE A DAY
  6. SIMVASTATIN. [Concomitant]
     Active Substance: SIMVASTATIN
     Indication: LIPIDS ABNORMAL
     Dosage: 20 MG, ONCE A DAY (IN THE EVENING)
  7. COENZYME Q10 [Concomitant]
     Active Substance: UBIDECARENONE
     Indication: SUPPLEMENTATION THERAPY
     Dosage: 100 MG, ONCE A DAY
  8. GLUCOSAMINE HYDROCHLORIDE [Concomitant]
     Active Substance: GLUCOSAMINE HYDROCHLORIDE
     Indication: ARTHRALGIA
     Dosage: 1500 MG, TWICE A DAY
  9. AMLODIPINE BESILATE [Suspect]
     Active Substance: AMLODIPINE BESYLATE
     Indication: BLOOD PRESSURE ABNORMAL
     Dosage: UNK, ONCE A DAY
  10. HYDROXYZINE HCL [Concomitant]
     Active Substance: HYDROXYZINE HYDROCHLORIDE
     Indication: PRURITUS
     Dosage: 25 MG, EVERY 4 HOURS
  11. DICYCLOMINE [Concomitant]
     Active Substance: DICYCLOMINE HYDROCHLORIDE
     Indication: ABDOMINAL PAIN
     Dosage: 20 MG, AS NEEDED (PRN)
  12. HYDROCODONE [Concomitant]
     Active Substance: HYDROCODONE
     Indication: PAIN
     Dosage: 7.5/325MG HALF TABLETS EVERY 4 HOURS
     Dates: start: 2000
  13. VITAMIN D3 [Concomitant]
     Active Substance: CHOLECALCIFEROL
     Indication: VITAMIN SUPPLEMENTATION
     Dosage: 4000 IU, DAILY
  14. VITAMIN C [Concomitant]
     Active Substance: ASCORBIC ACID
     Indication: ROUTINE HEALTH MAINTENANCE
     Dosage: 1000 MG, ONCE A DAY
     Dates: start: 1985
  15. SYNTHROID [Concomitant]
     Active Substance: LEVOTHYROXINE SODIUM
     Indication: THYROID DISORDER
     Dosage: 100 UG, ONCE A DAY
  16. CALCIUM [Concomitant]
     Active Substance: CALCIUM
     Indication: BONE DISORDER
     Dosage: 600 MG, THREE TIMES A DAY
     Dates: start: 1985
  17. LIDOCAINE. [Concomitant]
     Active Substance: LIDOCAINE
     Indication: PAIN
     Dosage: UNK, ONCE A DAY
  18. MAGNESIUM [Concomitant]
     Active Substance: MAGNESIUM
     Indication: CARDIAC DISORDER
     Dosage: 400 MG, TWICE A DAY
     Dates: start: 2015
  19. VITAMIN E /00110501/ [Concomitant]
     Active Substance: TOCOPHEROL
     Indication: ROUTINE HEALTH MAINTENANCE
     Dosage: 400 IU, ONCE A DAY
  20. MULTIVITAMIN /00097801/ [Concomitant]
     Active Substance: VITAMINS
     Indication: ROUTINE HEALTH MAINTENANCE
     Dosage: 1 TABLET (DF), DAILY

REACTIONS (2)
  - Oedema peripheral [Recovered/Resolved]
  - Erythema [Recovered/Resolved]

NARRATIVE: CASE EVENT DATE: 201612
